FAERS Safety Report 9125798 (Version 1)
Quarter: 2013Q1

REPORT INFORMATION
  Report Type: Spontaneous
  Country: US (occurrence: US)
  Receive Date: 20130121
  Receipt Date: 20130121
  Transmission Date: 20140127
  Serious: No
  Sender: FDA-Public Use
  Company Number: US-009507513-1301USA008440

PATIENT
  Age: 11 Year
  Sex: Female

DRUGS (1)
  1. SINGULAIR [Suspect]
     Dosage: 1 TABLET  EVERY NIGHT
     Route: 048
     Dates: start: 20121123

REACTIONS (1)
  - Eyelid oedema [Not Recovered/Not Resolved]
